FAERS Safety Report 4757077-3 (Version None)
Quarter: 2005Q3

REPORT INFORMATION
  Report Type: 
  Country: None (occurrence: None)
  Receive Date: 20050829
  Receipt Date: 20050829
  Transmission Date: 20060218
  Serious: Yes (Other)
  Sender: FDA-Public Use
  Company Number: None

PATIENT
  Age: 64 Year
  Sex: Male
  Weight: 25.855 kg

DRUGS (2)
  1. SINGULAIR [Suspect]
     Indication: ASTHMA
     Dosage: QD
     Dates: start: 20020930, end: 20050531
  2. ZYRTEC [Suspect]
     Indication: RHINITIS ALLERGIC
     Dosage: QD
     Dates: start: 20040119, end: 20050531

REACTIONS (2)
  - HALLUCINATION [None]
  - SLEEP WALKING [None]
